FAERS Safety Report 13177226 (Version 1)
Quarter: 2017Q1

REPORT INFORMATION
  Report Type: Report from Study
  Country: US (occurrence: US)
  Receive Date: 20170201
  Receipt Date: 20170201
  Transmission Date: 20170428
  Serious: Yes (Other)
  Sender: FDA-Public Use
  Company Number: US-IPSEN-CABO-16007423

PATIENT
  Age: 77 Year
  Sex: Male

DRUGS (11)
  1. CABOMETYX [Suspect]
     Active Substance: CABOZANTINIB S-MALATE
     Dosage: 60 MG, QD
     Route: 048
     Dates: start: 201610
  2. SIMVASTATIN. [Concomitant]
     Active Substance: SIMVASTATIN
  3. TRIAMTERENE AND HYDROCHLOROTHIAZIDE [Concomitant]
     Active Substance: HYDROCHLOROTHIAZIDE\TRIAMTERENE
  4. BABY ASPIRIN [Concomitant]
     Active Substance: ASPIRIN
  5. CALCITRIOL. [Concomitant]
     Active Substance: CALCITRIOL
  6. CALCIUM [Concomitant]
     Active Substance: CALCIUM
  7. FINASTERIDE. [Concomitant]
     Active Substance: FINASTERIDE
  8. MIRALAX [Concomitant]
     Active Substance: POLYETHYLENE GLYCOL 3350
  9. AMIODARONE HYDROCHLORIDE. [Concomitant]
     Active Substance: AMIODARONE HYDROCHLORIDE
  10. LEVOTHYROXINE. [Concomitant]
     Active Substance: LEVOTHYROXINE
  11. CABOMETYX [Suspect]
     Active Substance: CABOZANTINIB S-MALATE
     Indication: THYROID CANCER
     Dosage: 100 MG, QD
     Route: 048
     Dates: start: 20160917, end: 201610

REACTIONS (9)
  - Vomiting [Recovering/Resolving]
  - Fatigue [Unknown]
  - Dry skin [Unknown]
  - Thrombosis [Not Recovered/Not Resolved]
  - Dry mouth [Unknown]
  - Nausea [Not Recovered/Not Resolved]
  - Diarrhoea [Not Recovered/Not Resolved]
  - Asthenia [Unknown]
  - Off label use [Unknown]

NARRATIVE: CASE EVENT DATE: 201610
